FAERS Safety Report 10758348 (Version 1)
Quarter: 2015Q1

REPORT INFORMATION
  Report Type: Spontaneous
  Country: CA (occurrence: CA)
  Receive Date: 20150203
  Receipt Date: 20150203
  Transmission Date: 20150721
  Serious: Yes (Hospitalization, Other)
  Sender: FDA-Public Use
  Company Number: US-ASTRAZENECA-2015SE05301

PATIENT
  Age: 10 Month
  Sex: Male
  Weight: 10 kg

DRUGS (5)
  1. SYNAGIS [Suspect]
     Active Substance: PALIVIZUMAB
     Indication: PRODUCT USED FOR UNKNOWN INDICATION
     Route: 030
     Dates: start: 20150114, end: 20150114
  2. LANSOPRAZOLE. [Concomitant]
     Active Substance: LANSOPRAZOLE
     Indication: PRODUCT USED FOR UNKNOWN INDICATION
  3. DESLORATADIN [Concomitant]
     Indication: PRODUCT USED FOR UNKNOWN INDICATION
     Dosage: DAILY
  4. VITAMIN D [Concomitant]
     Active Substance: CHOLECALCIFEROL
     Indication: PRODUCT USED FOR UNKNOWN INDICATION
  5. TOPICAL CREAM [Concomitant]
     Active Substance: UNSPECIFIED INGREDIENT
     Indication: ECZEMA
     Route: 061

REACTIONS (7)
  - Eye swelling [Recovering/Resolving]
  - Swelling face [Recovering/Resolving]
  - Unresponsive to stimuli [Recovering/Resolving]
  - Pallor [Recovering/Resolving]
  - Lip swelling [Recovering/Resolving]
  - Oxygen saturation decreased [Recovering/Resolving]
  - Hypersensitivity [Recovered/Resolved]

NARRATIVE: CASE EVENT DATE: 201501
